FAERS Safety Report 4342763-X (Version None)
Quarter: 2004Q2

REPORT INFORMATION
  Report Type: 
  Country: None (occurrence: None)
  Receive Date: 20040409
  Receipt Date: 20030709
  Transmission Date: 20050107
  Serious: Yes (Hospitalization)
  Sender: FDA-Public Use
  Company Number: 03P-163-0223951-00

PATIENT
  Age: 31 Year
  Sex: Male

DRUGS (7)
  1. DEPAKOTE [Suspect]
     Indication: CONVULSION
     Dosage: 1000 MG, 2 IN 1 D
     Dates: end: 20021125
  2. DEPAKOTE [Suspect]
     Indication: EPILEPSY
     Dosage: 1000 MG, 2 IN 1 D
     Dates: end: 20021125
  3. DEPACON [Suspect]
     Indication: CONVULSION
     Dosage: INTRAVENOUS
     Route: 042
     Dates: start: 20021127, end: 20021127
  4. LAMOTRIGINE [Suspect]
     Indication: CONVULSION
     Dosage: 200 MG, 2 IN 1 D
     Dates: end: 20021125
  5. LAMOTRIGINE [Suspect]
     Indication: EPILEPSY
     Dosage: 200 MG, 2 IN 1 D
     Dates: end: 20021125
  6. CARBAMAZEPINE [Suspect]
     Indication: CONVULSION
     Dosage: 400 MG, 2 IN 1 D
     Dates: end: 20021125
  7. CARBAMAZEPINE [Suspect]
     Indication: EPILEPSY
     Dosage: 400 MG, 2 IN 1 D
     Dates: end: 20021125

REACTIONS (4)
  - AMMONIA INCREASED [None]
  - BLOOD BILIRUBIN INCREASED [None]
  - CONVULSION [None]
  - INJECTION SITE IRRITATION [None]
